FAERS Safety Report 8883099 (Version 1)
Quarter: 2012Q4

REPORT INFORMATION
  Report Type: 
  Country: US (occurrence: US)
  Receive Date: 20121102
  Receipt Date: 20121102
  Transmission Date: 20130627
  Serious: Yes (Hospitalization)
  Sender: FDA-Public Use
  Company Number: PHEH2012US021315

PATIENT
  Age: 40 Year
  Sex: Female

DRUGS (1)
  1. AFINITOR [Suspect]
     Indication: BREAST CANCER
     Dosage: 10 mg, QD
     Route: 048

REACTIONS (2)
  - Blood glucose increased [Recovering/Resolving]
  - Fall [Recovering/Resolving]
